FAERS Safety Report 12262795 (Version 1)
Quarter: 2016Q2

REPORT INFORMATION
  Report Type: Spontaneous
  Country: US (occurrence: US)
  Receive Date: 20160413
  Receipt Date: 20160413
  Transmission Date: 20160815
  Serious: No
  Sender: FDA-Public Use
  Company Number: US-BAYER-2016-069846

PATIENT
  Age: 52 Year
  Sex: Female

DRUGS (1)
  1. ULTRAVIST [Suspect]
     Active Substance: IOPROMIDE
     Dosage: 7.5 ML, ONCE
     Dates: start: 20160329, end: 20160329

REACTIONS (2)
  - Erythema [Unknown]
  - Sneezing [Unknown]

NARRATIVE: CASE EVENT DATE: 20160329
